FAERS Safety Report 8474202-1 (Version None)
Quarter: 2012Q2

REPORT INFORMATION
  Report Type: 
  Country: None (occurrence: None)
  Receive Date: 20120402
  Receipt Date: 20111209
  Transmission Date: 20120825
  Serious: Yes (Hospitalization, Disabling, Other)
  Sender: FDA-Public Use
  Company Number: 313107USA

PATIENT
  Age: 73 Year
  Sex: Female

DRUGS (2)
  1. ALENDRONATE SODIUM [Suspect]
     Dates: start: 20080201, end: 20100901
  2. ALENDRONATE SODIUM [Suspect]
     Dates: start: 20060131, end: 20080101

REACTIONS (5)
  - STRESS FRACTURE [None]
  - OSTEOGENESIS IMPERFECTA [None]
  - BONE DISORDER [None]
  - FEMUR FRACTURE [None]
  - LOW TURNOVER OSTEOPATHY [None]
